FAERS Safety Report 18648316 (Version 1)
Quarter: 2020Q4

REPORT INFORMATION
  Report Type: Other
  Country: DE (occurrence: DE)
  Receive Date: 20201222
  Receipt Date: 20201222
  Transmission Date: 20210114
  Serious: Yes (Other)
  Sender: FDA-Public Use
  Company Number: DE-ROCHE-2735357

PATIENT
  Age: 84 Year
  Sex: Male

DRUGS (2)
  1. RANIBIZUMAB. [Suspect]
     Active Substance: RANIBIZUMAB
     Indication: DIABETIC RETINAL OEDEMA
     Dosage: PREFILLED SYRINGE
     Route: 031
  2. MITOMYCIN C [Concomitant]
     Active Substance: MITOMYCIN

REACTIONS (1)
  - Glaucoma [Not Recovered/Not Resolved]
